FAERS Safety Report 7909814-4 (Version None)
Quarter: 2011Q4

REPORT INFORMATION
  Report Type: 
  Country: None (occurrence: None)
  Receive Date: 20111111
  Receipt Date: 20111108
  Transmission Date: 20120403
  Serious: Yes (Hospitalization)
  Sender: FDA-Public Use
  Company Number: US-MERCK-1105USA01171

PATIENT
  Age: 69 Year
  Sex: Male
  Weight: 78 kg

DRUGS (6)
  1. FOSAMAX [Suspect]
     Route: 048
     Dates: start: 20020508
  2. BONIVA [Suspect]
     Route: 065
     Dates: start: 20060301
  3. FOSAMAX [Suspect]
     Route: 048
     Dates: start: 20020508
  4. FOSAMAX [Suspect]
     Indication: OSTEOPENIA
     Route: 048
     Dates: start: 20000628, end: 20080401
  5. FOSAMAX [Suspect]
     Indication: OSTEOPOROSIS
     Route: 048
     Dates: start: 20000628, end: 20080401
  6. ACTONEL [Suspect]
     Indication: OSTEOPOROSIS
     Route: 048
     Dates: start: 20100401

REACTIONS (33)
  - CARDIAC FAILURE CONGESTIVE [None]
  - CARDIOMEGALY [None]
  - ORTHOSTATIC HYPOTENSION [None]
  - MUSCLE SPASMS [None]
  - BLADDER DIVERTICULUM [None]
  - ANAEMIA [None]
  - TRICUSPID VALVE INCOMPETENCE [None]
  - STENT PLACEMENT [None]
  - MUSCULOSKELETAL CHEST PAIN [None]
  - PEPTIC ULCER [None]
  - CHRONIC OBSTRUCTIVE PULMONARY DISEASE [None]
  - ACETABULUM FRACTURE [None]
  - PERICARDIAL CALCIFICATION [None]
  - MITRAL VALVE INCOMPETENCE [None]
  - VENTRICULAR HYPOKINESIA [None]
  - FEMORAL ARTERY OCCLUSION [None]
  - NEPHROPATHY [None]
  - ATRIAL FIBRILLATION [None]
  - LACUNAR INFARCTION [None]
  - GASTROOESOPHAGEAL REFLUX DISEASE [None]
  - SYNCOPE [None]
  - PAIN [None]
  - EMPHYSEMA [None]
  - ADVERSE EVENT [None]
  - HIATUS HERNIA [None]
  - FALL [None]
  - ANGINA PECTORIS [None]
  - LIPOMA [None]
  - HELICOBACTER INFECTION [None]
  - GLAUCOMA [None]
  - RIB FRACTURE [None]
  - RENAL FAILURE [None]
  - CARDIAC DISORDER [None]
